FAERS Safety Report 6052730-6 (Version None)
Quarter: 2009Q1

REPORT INFORMATION
  Report Type: 
  Country: None (occurrence: None)
  Receive Date: 20090127
  Receipt Date: 20090121
  Transmission Date: 20090719
  Serious: Yes (Hospitalization, Other)
  Sender: FDA-Public Use
  Company Number: AU-BRISTOL-MYERS SQUIBB COMPANY-14453336

PATIENT
  Age: 77 Year
  Sex: Female

DRUGS (7)
  1. KARVEZIDE [Suspect]
     Dosage: 1 DOSAGE FORM = 300 / 12.5 MG MORNING.
  2. EPILIM [Suspect]
     Dosage: 1 DOSAGE FORM = 200MG MORNING, 400MG NIGHT
     Dates: start: 20070720
  3. SIMVAR [Concomitant]
     Dosage: 1 DOSAGE FORM = 80 MG , BEDTIME.
  4. FOLIC ACID [Concomitant]
  5. MULTI-B FORTE [Concomitant]
     Dosage: AT MORNING.
  6. CARTIA XT [Concomitant]
     Dosage: AT MORNING.
  7. EFFEXOR XR [Concomitant]
     Dosage: AT MORNING.

REACTIONS (2)
  - FALL [None]
  - SOMNOLENCE [None]
